FAERS Safety Report 4706032-8 (Version None)
Quarter: 2005Q2

REPORT INFORMATION
  Report Type: 
  Country: None (occurrence: None)
  Receive Date: 20050627
  Receipt Date: 20040719
  Transmission Date: 20051028
  Serious: Yes (Other)
  Sender: FDA-Public Use
  Company Number: US-JNJFOC-20040402731

PATIENT
  Age: 49 Year
  Sex: Female
  Weight: 53.5244 kg

DRUGS (5)
  1. DURAGESIC-100 [Suspect]
     Indication: PAIN
     Dosage: 75 UG/HR, 1 IN 72 HOUR, TRANSDERMAL
     Route: 062
     Dates: start: 20040101, end: 20040405
  2. IMITREX [Concomitant]
  3. VALIUM [Concomitant]
  4. VICODIN [Concomitant]
  5. NAPROSYN [Concomitant]

REACTIONS (3)
  - APPLICATION SITE REACTION [None]
  - MAJOR DEPRESSION [None]
  - WEIGHT DECREASED [None]
